FAERS Safety Report 4664606-7 (Version None)
Quarter: 2005Q2

REPORT INFORMATION
  Report Type: 
  Country: None (occurrence: None)
  Receive Date: 20050518
  Receipt Date: 20050511
  Transmission Date: 20051028
  Serious: Yes (Other)
  Sender: FDA-Public Use
  Company Number: AU-GLAXOSMITHKLINE-B0381313A

PATIENT
  Age: 38 Year
  Sex: Female

DRUGS (2)
  1. ZYBAN [Suspect]
     Dosage: 1TAB TWICE PER DAY
     Route: 048
     Dates: start: 20050502, end: 20050505
  2. NO CONCURRENT MEDICATION [Concomitant]

REACTIONS (3)
  - COORDINATION ABNORMAL [None]
  - DEPRESSED LEVEL OF CONSCIOUSNESS [None]
  - IMPAIRED DRIVING ABILITY [None]
